FAERS Safety Report 6158671-8 (Version None)
Quarter: 2009Q2

REPORT INFORMATION
  Report Type: 
  Country: None (occurrence: None)
  Receive Date: 20090417
  Receipt Date: 20090409
  Transmission Date: 20091009
  Serious: Yes (Hospitalization)
  Sender: FDA-Public Use
  Company Number: A0653549A

PATIENT
  Sex: Male
  Weight: 78 kg

DRUGS (3)
  1. LAPATINIB [Suspect]
     Dosage: 1500MG PER DAY
     Route: 048
     Dates: start: 20070515
  2. CISPLATIN [Suspect]
     Dosage: 100MGM2 CYCLIC
     Route: 042
     Dates: start: 20070521
  3. RADIOTHERAPY [Suspect]
     Route: 061
     Dates: start: 20070521

REACTIONS (2)
  - PNEUMONIA ASPIRATION [None]
  - RENAL FAILURE [None]
